FAERS Safety Report 15345043 (Version 2)
Quarter: 2018Q3

REPORT INFORMATION
  Report Type: Spontaneous
  Country: US (occurrence: US)
  Receive Date: 20180903
  Receipt Date: 20180903
  Transmission Date: 20181010
  Serious: Yes (Hospitalization)
  Sender: FDA-Public Use
  Company Number: PHEH2018US035968

PATIENT
  Sex: Male

DRUGS (10)
  1. AFINITOR [Suspect]
     Active Substance: EVEROLIMUS
     Dosage: 5 MG, QD (DAILY)
     Route: 048
     Dates: start: 2018, end: 201806
  2. LENVIMA [Suspect]
     Active Substance: LENVATINIB
     Indication: RENAL CANCER
     Dosage: 18 MG, QD (ONCE DAILY)
     Route: 048
     Dates: start: 20180418, end: 201805
  3. LENVIMA [Suspect]
     Active Substance: LENVATINIB
     Dosage: 10 MG, QD (ONCE DAILY)
     Route: 048
     Dates: start: 201806, end: 20180823
  4. ENALAPRIL [Suspect]
     Active Substance: ENALAPRIL
     Indication: BLOOD PRESSURE INCREASED
     Dosage: UNK UNK, QD (ONCE DAILY)
     Route: 048
     Dates: start: 201805, end: 201805
  5. AFINITOR [Suspect]
     Active Substance: EVEROLIMUS
     Dosage: 5 MG, QD (DAILY)
     Route: 048
     Dates: start: 201806
  6. AFINITOR [Suspect]
     Active Substance: EVEROLIMUS
     Dosage: 5 MG, QD (DAILY)
     Route: 048
     Dates: start: 20180510, end: 201805
  7. LENVIMA [Suspect]
     Active Substance: LENVATINIB
     Dosage: 18 MG, QD (ONCE DAILY)
     Route: 048
     Dates: start: 20180510, end: 201805
  8. LENVIMA [Suspect]
     Active Substance: LENVATINIB
     Dosage: 18 MG, QD (DAILY)
     Route: 048
     Dates: start: 2018, end: 201806
  9. AFINITOR [Suspect]
     Active Substance: EVEROLIMUS
     Indication: RENAL CANCER
     Dosage: 5 MG, QD (DAILY)
     Route: 048
     Dates: start: 20180417, end: 201805
  10. ENALAPRIL [Suspect]
     Active Substance: ENALAPRIL
     Dosage: UNK UNK, BID (TWICE DAILY)
     Route: 048
     Dates: start: 201805

REACTIONS (9)
  - Asthenia [Recovered/Resolved]
  - Blood pressure increased [Recovered/Resolved]
  - Intestinal obstruction [Unknown]
  - Compression fracture [Unknown]
  - Dehydration [Recovered/Resolved]
  - Blood creatinine increased [Recovering/Resolving]
  - Liver function test increased [Recovered/Resolved]
  - Fatigue [Unknown]
  - Nausea [Unknown]

NARRATIVE: CASE EVENT DATE: 2018
